FAERS Safety Report 20623859 (Version 1)
Quarter: 2022Q1

REPORT INFORMATION
  Report Type: Spontaneous
  Country: ES (occurrence: ES)
  Receive Date: 20220322
  Receipt Date: 20220322
  Transmission Date: 20220423
  Serious: Yes (Life-Threatening, Other)
  Sender: FDA-Public Use
  Company Number: None

PATIENT
  Age: 78 Year
  Sex: Male

DRUGS (8)
  1. AMLODIPINE BESYLATE\HYDROCHLOROTHIAZIDE\OLMESARTAN MEDOXOMIL [Suspect]
     Active Substance: AMLODIPINE BESYLATE\HYDROCHLOROTHIAZIDE\OLMESARTAN MEDOXOMIL
     Indication: Essential hypertension
     Dosage: 40MG/10MG/25MG, 1 IN 1D
     Route: 048
     Dates: start: 20220218, end: 20220224
  2. MOXONIDINE [Suspect]
     Active Substance: MOXONIDINE
     Indication: Essential hypertension
     Dosage: 1 DF, ONCE EVERY 12HR
     Route: 048
     Dates: start: 20220218, end: 20220224
  3. ALDACTONE [Suspect]
     Active Substance: SPIRONOLACTONE
     Indication: Essential hypertension
     Dosage: 1 DF, 1 IN 12HOURS
     Route: 048
     Dates: start: 20220210, end: 20220224
  4. TEGRETOL [Concomitant]
     Active Substance: CARBAMAZEPINE
     Indication: Trigeminal neuralgia
     Dosage: 1 DF, 1 IN 12 HOURS
     Route: 048
     Dates: start: 20200923
  5. ALLOPURINOL [Concomitant]
     Active Substance: ALLOPURINOL
     Indication: Product used for unknown indication
     Dosage: 1 DF, QD
     Route: 048
     Dates: start: 20120626
  6. DUPHALAC [Concomitant]
     Active Substance: LACTULOSE
     Indication: Constipation
     Dosage: 10 G, UNK
     Route: 048
     Dates: start: 20210804
  7. XARELTO [Concomitant]
     Active Substance: RIVAROXABAN
     Indication: Atrial fibrillation
     Dosage: 1 DF, QD (1 IN 1 D)
     Route: 048
     Dates: start: 20130625
  8. METFORMIN HYDROCHLORIDE [Concomitant]
     Active Substance: METFORMIN HYDROCHLORIDE
     Indication: Type 2 diabetes mellitus
     Dosage: 1 DF, 1 IN 12 HOURS
     Route: 048
     Dates: start: 20211110

REACTIONS (6)
  - Bradycardia [Recovered/Resolved]
  - Diarrhoea [Recovered/Resolved]
  - Asthenia [Recovering/Resolving]
  - Hyperkalaemia [Recovered/Resolved]
  - Dizziness [Recovered/Resolved]
  - Acute kidney injury [Recovered/Resolved]

NARRATIVE: CASE EVENT DATE: 20220224
